FAERS Safety Report 5710859-3 (Version None)
Quarter: 2008Q2

REPORT INFORMATION
  Report Type: 
  Country: None (occurrence: None)
  Receive Date: 20080415
  Receipt Date: 20080404
  Transmission Date: 20081010
  Serious: Yes (Other)
  Sender: FDA-Public Use
  Company Number: 2008-01228

PATIENT
  Sex: Female

DRUGS (1)
  1. VELCADE [Suspect]
     Indication: MULTIPLE MYELOMA
     Dosage: PARENTERAL
     Route: 051
     Dates: start: 20060703, end: 20061211

REACTIONS (1)
  - SYSTEMIC LUPUS ERYTHEMATOSUS [None]
